FAERS Safety Report 4665446-5 (Version None)
Quarter: 2005Q2

REPORT INFORMATION
  Report Type: 
  Country: None (occurrence: None)
  Receive Date: 20050518
  Receipt Date: 20050518
  Transmission Date: 20051028
  Serious: Yes (Hospitalization)
  Sender: FDA-Public Use
  Company Number: None

PATIENT
  Sex: Male

DRUGS (11)
  1. GATIFLOXACIN [Suspect]
     Indication: PNEUMONIA
     Dosage: 200 MG DAILY ORAL
     Route: 048
     Dates: start: 20050131, end: 20050207
  2. ISMO [Concomitant]
  3. LISINOPRIL [Concomitant]
  4. OMPRAZOLE [Concomitant]
  5. METOPROLOL [Concomitant]
  6. SIMVASTATIN [Concomitant]
  7. PILOCARPINE [Concomitant]
  8. CLOPIDOGREL BISULFATE [Concomitant]
  9. ASPIRIN [Concomitant]
  10. FLUNISOLIDE [Concomitant]
  11. FORMOTEROL [Concomitant]

REACTIONS (2)
  - CLOSTRIDIAL INFECTION [None]
  - DIARRHOEA [None]
